FAERS Safety Report 12853049 (Version 1)
Quarter: 2016Q4

REPORT INFORMATION
  Report Type: Spontaneous
  Country: US (occurrence: US)
  Receive Date: 20161017
  Receipt Date: 20161017
  Transmission Date: 20170207
  Serious: Yes (Death)
  Sender: FDA-Public Use
  Company Number: None

PATIENT
  Sex: Female
  Weight: 135.29 kg

DRUGS (1)
  1. STELARA [Suspect]
     Active Substance: USTEKINUMAB
     Indication: PSORIATIC ARTHROPATHY
     Dosage: 90MG Q12WEEKS SUBCUTANEOUSLY
     Route: 058
     Dates: start: 201604

REACTIONS (7)
  - Rash [None]
  - Hepatic enzyme increased [None]
  - Feeling abnormal [None]
  - Swollen tongue [None]
  - Swelling face [None]
  - Pruritus [None]
  - Urticaria [None]
